FAERS Safety Report 4895473-4 (Version None)
Quarter: 2006Q1

REPORT INFORMATION
  Report Type: 
  Country: None (occurrence: None)
  Receive Date: 20060130
  Receipt Date: 20060124
  Transmission Date: 20060701
  Serious: Yes (Death)
  Sender: FDA-Public Use
  Company Number: AU-BOEHRINGER INGELHEIM PHARMACEUTICALS, INC.-2006-BP-00819AU

PATIENT
  Age: 96 Year
  Sex: Male

DRUGS (1)
  1. MICARDIS [Suspect]

REACTIONS (1)
  - DEATH [None]
